FAERS Safety Report 26207969 (Version 2)
Quarter: 2025Q4

REPORT INFORMATION
  Report Type: Spontaneous
  Country: US (occurrence: US)
  Receive Date: 20251229
  Receipt Date: 20251229
  Transmission Date: 20260117
  Serious: Yes (Other)
  Sender: ROCHE
  Company Number: US-ROCHE-10000463500

PATIENT

DRUGS (3)
  1. XOLAIR [Suspect]
     Active Substance: OMALIZUMAB
     Indication: Urticaria chronic
  2. XOLAIR [Suspect]
     Active Substance: OMALIZUMAB
     Indication: Urticaria
  3. XOLAIR [Suspect]
     Active Substance: OMALIZUMAB
     Indication: Angioedema

REACTIONS (8)
  - Hemiparesis [Unknown]
  - Muscle spasms [Unknown]
  - Swelling face [Unknown]
  - Gait disturbance [Not Recovered/Not Resolved]
  - Gait disturbance [Not Recovered/Not Resolved]
  - Fatigue [Not Recovered/Not Resolved]
  - Urticaria [Not Recovered/Not Resolved]
  - Angioedema [Not Recovered/Not Resolved]

NARRATIVE: CASE EVENT DATE: 20250901
